FAERS Safety Report 8261317-6 (Version None)
Quarter: 2012Q2

REPORT INFORMATION
  Report Type: 
  Country: None (occurrence: None)
  Receive Date: 20120405
  Receipt Date: 20120329
  Transmission Date: 20120825
  Serious: Yes (Hospitalization, Other)
  Sender: FDA-Public Use
  Company Number: ES-ABBOTT-12P-144-0904854-00

PATIENT
  Sex: Male
  Weight: 60 kg

DRUGS (4)
  1. HUMIRA [Suspect]
     Indication: PSORIASIS
     Route: 058
     Dates: start: 20110907, end: 20110907
  2. HUMIRA [Suspect]
     Route: 058
     Dates: start: 20110914, end: 20111201
  3. OMEPRAZOLE [Concomitant]
     Indication: PRODUCT USED FOR UNKNOWN INDICATION
     Route: 048
  4. STATIN [Concomitant]
     Indication: DYSLIPIDAEMIA
     Route: 048

REACTIONS (7)
  - NON-SMALL CELL LUNG CANCER [None]
  - TONGUE NEOPLASM MALIGNANT STAGE UNSPECIFIED [None]
  - TUBERCULIN TEST POSITIVE [None]
  - HAEMOPTYSIS [None]
  - ISCHAEMIC STROKE [None]
  - PRODUCTIVE COUGH [None]
  - COLON CANCER [None]
